FAERS Safety Report 18745474 (Version 2)
Quarter: 2021Q1

REPORT INFORMATION
  Report Type: Spontaneous
  Country: US (occurrence: US)
  Receive Date: 20210115
  Receipt Date: 20210120
  Transmission Date: 20210419
  Serious: No
  Sender: FDA-Public Use
  Company Number: US-CELGENEUS-USA-20210101858

PATIENT
  Age: 59 Year
  Sex: Male

DRUGS (2)
  1. ZEPOSIA [Suspect]
     Active Substance: OZANIMOD HYDROCHLORIDE
     Indication: MULTIPLE SCLEROSIS
     Dosage: 0.23?0.92 MG
     Route: 048
     Dates: start: 20201214, end: 20210113
  2. ADDERALL [Concomitant]
     Active Substance: AMPHETAMINE ASPARTATE\AMPHETAMINE SULFATE\DEXTROAMPHETAMINE SACCHARATE\DEXTROAMPHETAMINE SULFATE
     Indication: CARDIAC DISORDER
     Route: 065
     Dates: start: 20210113

REACTIONS (3)
  - Heart rate irregular [Unknown]
  - Heart rate abnormal [Unknown]
  - Atrioventricular block [Unknown]

NARRATIVE: CASE EVENT DATE: 20201219
